FAERS Safety Report 14813019 (Version 1)
Quarter: 2018Q2

REPORT INFORMATION
  Report Type: Report from Study
  Country: None (occurrence: PR)
  Receive Date: 20180426
  Receipt Date: 20180426
  Transmission Date: 20180711
  Serious: Yes (Other)
  Sender: FDA-Public Use
  Company Number: PR-ABBVIE-18K-131-2333734-00

PATIENT
  Age: 61 Year
  Sex: Female

DRUGS (8)
  1. PREDNISONE. [Concomitant]
     Active Substance: PREDNISONE
     Indication: CROHN^S DISEASE
     Dates: start: 201612
  2. HUMIRA [Suspect]
     Active Substance: ADALIMUMAB
     Indication: CROHN^S DISEASE
     Route: 058
     Dates: start: 20170404
  3. PROZAC [Concomitant]
     Active Substance: FLUOXETINE HYDROCHLORIDE
     Indication: DEPRESSION
     Dates: start: 201704
  4. KLONOPIN [Concomitant]
     Active Substance: CLONAZEPAM
     Indication: DEPRESSION
     Dates: start: 201704
  5. ACTIGALL [Concomitant]
     Active Substance: URSODIOL
     Indication: VITAMIN SUPPLEMENTATION
  6. LIBRAX [Concomitant]
     Active Substance: CHLORDIAZEPOXIDE HYDROCHLORIDE\CLIDINIUM BROMIDE
     Indication: HYPERCHLORHYDRIA
     Dates: start: 201612
  7. URSODIOL. [Concomitant]
     Active Substance: URSODIOL
     Indication: HEPATIC ENZYME INCREASED
     Dates: start: 201612
  8. PANTOPRAZOLE [Concomitant]
     Active Substance: PANTOPRAZOLE
     Indication: HYPERCHLORHYDRIA

REACTIONS (1)
  - Hepatic cirrhosis [Not Recovered/Not Resolved]

NARRATIVE: CASE EVENT DATE: 20180420
